FAERS Safety Report 8398064-6 (Version None)
Quarter: 2012Q2

REPORT INFORMATION
  Report Type: 
  Country: None (occurrence: None)
  Receive Date: 20120531
  Receipt Date: 20120523
  Transmission Date: 20120825
  Serious: Yes (Death)
  Sender: FDA-Public Use
  Company Number: EG-SANOFI-AVENTIS-2012SA038038

PATIENT
  Age: 49 Year
  Sex: Male

DRUGS (1)
  1. LANTUS [Suspect]
     Dosage: DOSE- PATIENT STARTED LANTUS WITH 40 U/D WHICH WAS TITRATED TO 60 U/D
     Route: 058
     Dates: start: 20100128, end: 20110812

REACTIONS (1)
  - HEPATIC FAILURE [None]
